FAERS Safety Report 22524021 (Version 2)
Quarter: 2023Q2

REPORT INFORMATION
  Report Type: Spontaneous
  Country: US (occurrence: US)
  Receive Date: 20230606
  Receipt Date: 20230621
  Transmission Date: 20230721
  Serious: No
  Sender: FDA-Public Use
  Company Number: US-AIMMUNE THERAPEUTICS, INC.-2023AIMT00534

PATIENT

DRUGS (2)
  1. PALFORZIA [Suspect]
     Active Substance: PEANUT
     Indication: Food allergy
     Dosage: IDE(0.5MG-3MG), ONCE
     Route: 048
     Dates: start: 20230525, end: 20230525
  2. PALFORZIA [Suspect]
     Active Substance: PEANUT
     Dosage: IDE (3MG, LEVEL D), ONCE, LAST DOSE PRIOR EVENT
     Route: 048
     Dates: start: 20230525, end: 20230525

REACTIONS (2)
  - Vomiting [Recovered/Resolved]
  - Abdominal discomfort [Recovered/Resolved]

NARRATIVE: CASE EVENT DATE: 20230525
